FAERS Safety Report 20736919 (Version 1)
Quarter: 2022Q2

REPORT INFORMATION
  Report Type: Spontaneous
  Country: AT (occurrence: AT)
  Receive Date: 20220421
  Receipt Date: 20220421
  Transmission Date: 20220721
  Serious: Yes (Other)
  Sender: FDA-Public Use
  Company Number: AT-NOVARTISPH-NVSC2022AT072117

PATIENT
  Age: 49 Year
  Sex: Female

DRUGS (4)
  1. DOCETAXEL [Suspect]
     Active Substance: DOCETAXEL
     Indication: Non-small cell lung cancer stage IV
     Dosage: 75 MG/M2, CYCLIC (FOR FIVE CYCLES) (INITIALLY IN COMBINATION WITH NINTEDANIB)
     Route: 042
  2. NINTEDANIB [Suspect]
     Active Substance: NINTEDANIB
     Indication: Non-small cell lung cancer stage IV
     Dosage: 200 MG, BID (THIRD-LINE) (INITIALLY IN COMBINATION WITH DOCETAXEL)
     Route: 048
  3. NINTEDANIB [Suspect]
     Active Substance: NINTEDANIB
     Dosage: UNK (REDUCED THE DOSE)
     Route: 065
  4. NINTEDANIB [Suspect]
     Active Substance: NINTEDANIB
     Dosage: UNK (THEN AS MAINTENANCE)
     Route: 065

REACTIONS (2)
  - Neutropenia [Unknown]
  - Off label use [Unknown]
